FAERS Safety Report 7458798-4 (Version None)
Quarter: 2011Q2

REPORT INFORMATION
  Report Type: 
  Country: None (occurrence: None)
  Receive Date: 20110504
  Receipt Date: 20110426
  Transmission Date: 20111010
  Serious: Yes (Life-Threatening, Hospitalization)
  Sender: FDA-Public Use
  Company Number: CA-BAXTER-2010BH030467

PATIENT
  Age: 60 Year
  Sex: Female

DRUGS (11)
  1. GAMMAGARD LIQUID [Suspect]
     Route: 065
     Dates: start: 20101215, end: 20101215
  2. GAMMAGARD LIQUID [Suspect]
     Route: 065
     Dates: start: 20101216, end: 20101216
  3. GAMMAGARD LIQUID [Suspect]
     Route: 065
     Dates: start: 20101216, end: 20101216
  4. IMMUNE GLOBULIN INTRAVENOUS (HUMAN) [Concomitant]
     Indication: MYASTHENIC SYNDROME
  5. PREDNISONE [Concomitant]
     Route: 048
  6. ALBUTEROL SULFATE AUTOHALER [Concomitant]
  7. TOLTERODINE [Concomitant]
  8. GAMMAGARD LIQUID [Suspect]
     Indication: ACCIDENTAL EXPOSURE
     Route: 065
     Dates: start: 20101215, end: 20101215
  9. AZATHIOPRINE [Concomitant]
     Route: 048
  10. LEVOTHYROXINE SODIUM [Concomitant]
     Route: 048
  11. 3,4-DIAMINOPYRIDINE [Concomitant]

REACTIONS (2)
  - WRONG DRUG ADMINISTERED [None]
  - ALLERGIC TRANSFUSION REACTION [None]
